FAERS Safety Report 15262826 (Version 1)
Quarter: 2018Q3

REPORT INFORMATION
  Report Type: Spontaneous
  Country: DE (occurrence: DE)
  Receive Date: 20180810
  Receipt Date: 20180810
  Transmission Date: 20181010
  Serious: Yes (Death, Life-Threatening, Hospitalization, Other)
  Sender: FDA-Public Use
  Company Number: DE-ALEMBIC PHARMACUETICALS LIMITED-2018SCAL000594

PATIENT

DRUGS (6)
  1. QUETIAPINE FUMARATE. [Interacting]
     Active Substance: QUETIAPINE FUMARATE
     Indication: SUICIDAL IDEATION
     Dosage: TWENTY NINE QUETIAPINE RETARD 300 MG TABLETS (TOTAL AMOUNT 8.7 G)
  2. MIRTAZAPINE. [Interacting]
     Active Substance: MIRTAZAPINE
     Indication: PRODUCT USED FOR UNKNOWN INDICATION
     Dosage: 7.5 GRAM
  3. IBUPROFEN. [Interacting]
     Active Substance: IBUPROFEN
     Indication: PRODUCT USED FOR UNKNOWN INDICATION
     Dosage: 400 MILLIGRAM
  4. IBUPROFEN. [Interacting]
     Active Substance: IBUPROFEN
     Dosage: 600 MILLIGRAM
  5. SINUPRET FORTE [Interacting]
     Active Substance: HERBALS
     Indication: PRODUCT USED FOR UNKNOWN INDICATION
     Dosage: 5 TABLETS
  6. QUETIAPINE FUMARATE. [Suspect]
     Active Substance: QUETIAPINE FUMARATE
     Indication: PERSONALITY DISORDER
     Dosage: TWENTY NINE QUETIAPINE RETARD 200 MG TABLETS (TOTAL AMOUNT 5.8 G)

REACTIONS (9)
  - Drug interaction [Unknown]
  - Toxicity to various agents [Unknown]
  - Seizure [Unknown]
  - Intentional overdose [Unknown]
  - Completed suicide [Fatal]
  - Pulmonary function test abnormal [Unknown]
  - Aspiration [Unknown]
  - Loss of consciousness [Unknown]
  - Acute respiratory distress syndrome [Unknown]
